FAERS Safety Report 4757353-4 (Version None)
Quarter: 2005Q3

REPORT INFORMATION
  Report Type: 
  Country: None (occurrence: None)
  Receive Date: 20050831
  Receipt Date: 20050826
  Transmission Date: 20060218
  Serious: Yes (Death)
  Sender: FDA-Public Use
  Company Number: US-AMGEN-US146176

PATIENT
  Sex: Female

DRUGS (16)
  1. ARANESP [Suspect]
     Indication: ANAEMIA OF MALIGNANT DISEASE
     Dates: start: 20050801, end: 20050801
  2. BUDESONIDE [Concomitant]
  3. PREDNISONE TAB [Concomitant]
  4. NORMAL SALINE [Concomitant]
  5. MAGNESIUM SULFATE [Concomitant]
  6. PROGRAF [Concomitant]
  7. CELLCEPT [Concomitant]
  8. DEXAMETHASONE [Concomitant]
  9. COUMADIN [Concomitant]
  10. OXYCODONE [Concomitant]
  11. ESTRADIOL [Concomitant]
  12. AMBIEN [Concomitant]
  13. BACTRIM DS [Concomitant]
  14. REGLAN [Concomitant]
  15. ATIVAN [Concomitant]
  16. NEUPOGEN [Concomitant]

REACTIONS (3)
  - DIARRHOEA [None]
  - HAEMOGLOBIN DECREASED [None]
  - SEPSIS [None]
